FAERS Safety Report 8809866 (Version 1)
Quarter: 2012Q4

REPORT INFORMATION
  Report Type: 
  Country: HU (occurrence: HU)
  Receive Date: 20120926
  Receipt Date: 20120926
  Transmission Date: 20130627
  Serious: Yes (Other)
  Sender: FDA-Public Use
  Company Number: HU-PFIZER INC-2012234270

PATIENT
  Age: 62 Year
  Sex: Female
  Weight: 66 kg

DRUGS (5)
  1. XALATAN [Suspect]
     Indication: GLAUCOMA
     Dosage: 1x1 drop/day
     Dates: start: 201103
  2. CARVOL [Concomitant]
     Dosage: started 5-6 years ago
  3. AMLIPIN [Concomitant]
     Dosage: started 5-6 years ago
  4. MODUXIN [Concomitant]
     Dosage: started 2 years ago
  5. COSOPT [Concomitant]
     Dosage: started 1.5 years ago

REACTIONS (2)
  - Visual acuity reduced [Not Recovered/Not Resolved]
  - Drug ineffective [Not Recovered/Not Resolved]
